FAERS Safety Report 5611909-5 (Version None)
Quarter: 2008Q1

REPORT INFORMATION
  Report Type: 
  Country: None (occurrence: None)
  Receive Date: 20080131
  Receipt Date: 20080131
  Transmission Date: 20080703
  Serious: Yes (Hospitalization)
  Sender: FDA-Public Use
  Company Number: None

PATIENT
  Age: 84 Year
  Sex: Female

DRUGS (3)
  1. ROCEPHIN [Suspect]
     Indication: CELLULITIS
     Dosage: 1 GM Q24H IV
     Route: 042
     Dates: start: 20071110, end: 20071115
  2. ROCEPHIN [Suspect]
     Indication: URINARY TRACT INFECTION
     Dosage: 1 GM Q24H IV
     Route: 042
     Dates: start: 20071110, end: 20071115
  3. SEPTRA [Suspect]
     Indication: CELLULITIS
     Dosage: DS 1 TAB BID PO
     Route: 048
     Dates: start: 20071113, end: 20071115

REACTIONS (3)
  - DERMATITIS EXFOLIATIVE [None]
  - ERYTHEMA [None]
  - SKIN EROSION [None]
